FAERS Safety Report 12360420 (Version 3)
Quarter: 2016Q2

REPORT INFORMATION
  Report Type: Spontaneous
  Country: US (occurrence: US)
  Receive Date: 20160512
  Receipt Date: 20160609
  Transmission Date: 20160815
  Serious: Yes (Death)
  Sender: FDA-Public Use
  Company Number: US-B.I. PHARMACEUTICALS,INC./RIDGEFIELD-2016-BI-29963BP

PATIENT
  Sex: Male
  Weight: 63.96 kg

DRUGS (1)
  1. GILOTRIF [Suspect]
     Active Substance: AFATINIB
     Indication: LUNG NEOPLASM MALIGNANT
     Dosage: 20 MG
     Route: 048
     Dates: start: 20141021, end: 20151021

REACTIONS (3)
  - Malignant neoplasm progression [Fatal]
  - Chronic lymphocytic leukaemia [Fatal]
  - Lung infection [Fatal]
